FAERS Safety Report 8055681-0 (Version None)
Quarter: 2012Q1

REPORT INFORMATION
  Report Type: 
  Country: None (occurrence: None)
  Receive Date: 20120119
  Receipt Date: 20120109
  Transmission Date: 20120608
  Serious: Yes (Disabling)
  Sender: FDA-Public Use
  Company Number: CA-ELI_LILLY_AND_COMPANY-CA201201002321

PATIENT
  Age: 69 Year
  Sex: Female

DRUGS (8)
  1. ALPRAZOLAM TEVA [Concomitant]
  2. CALCIUM +VIT D [Concomitant]
     Dosage: 400 IU, UNK
  3. D-TABS [Concomitant]
  4. EVISTA [Suspect]
     Dosage: 60 MG, QD
     Route: 048
  5. SIMVASTATIN [Concomitant]
  6. SERTRALINE HYDROCHLORIDE [Concomitant]
  7. SERC                               /00034201/ [Concomitant]
     Dosage: 16 MG, UNK
  8. SYNTHROID [Concomitant]
     Dosage: 75 UG, UNK

REACTIONS (1)
  - VITREOUS FLOATERS [None]
